FAERS Safety Report 23320957 (Version 2)
Quarter: 2024Q1

REPORT INFORMATION
  Report Type: Spontaneous
  Country: IT (occurrence: IT)
  Receive Date: 20231220
  Receipt Date: 20240104
  Transmission Date: 20240409
  Serious: Yes (Hospitalization, Other)
  Sender: FDA-Public Use
  Company Number: IT-SANOFI-01875051

PATIENT
  Age: 87 Year
  Sex: Male

DRUGS (1)
  1. HYDROCORTISONE [Suspect]
     Active Substance: HYDROCORTISONE
     Indication: Adrenogenital syndrome
     Dosage: 2 DF, QD(2 TABLETS PER DAY)
     Route: 042
     Dates: start: 2022

REACTIONS (7)
  - Adrenocortical insufficiency acute [Recovered/Resolved]
  - Cardiac failure [Recovered/Resolved]
  - Renal failure [Recovered/Resolved]
  - Respiratory disorder [Unknown]
  - Cardiac disorder [Unknown]
  - Seizure [Unknown]
  - Dyspnoea [Recovered/Resolved]

NARRATIVE: CASE EVENT DATE: 20230601
